FAERS Safety Report 4906565-5 (Version None)
Quarter: 2006Q1

REPORT INFORMATION
  Report Type: 
  Country: None (occurrence: None)
  Receive Date: 20060209
  Receipt Date: 20060130
  Transmission Date: 20060701
  Serious: Yes (Hospitalization)
  Sender: FDA-Public Use
  Company Number: GB-BRISTOL-MYERS SQUIBB COMPANY-13265228

PATIENT
  Sex: Female

DRUGS (5)
  1. ABILIFY [Suspect]
     Route: 048
  2. CARBAMAZEPINE [Concomitant]
  3. ESCITALOPRAM OXALATE [Concomitant]
  4. HALOPERIDOL [Concomitant]
  5. BENZODIAZEPINES [Concomitant]

REACTIONS (2)
  - HEPATITIS ACUTE [None]
  - RESPIRATORY DISTRESS [None]
